FAERS Safety Report 18610911 (Version 3)
Quarter: 2021Q1

REPORT INFORMATION
  Report Type: Spontaneous
  Country: JP (occurrence: JP)
  Receive Date: 20201214
  Receipt Date: 20210220
  Transmission Date: 20210419
  Serious: Yes (Hospitalization, Other)
  Sender: FDA-Public Use
  Company Number: JP-JNJFOC-20201215472

PATIENT
  Age: 89 Year
  Sex: Female

DRUGS (7)
  1. RIVAROXABAN [Suspect]
     Active Substance: RIVAROXABAN
     Dosage: 10 MG, QD
     Route: 048
     Dates: start: 20201002
  2. AMLODIN [Concomitant]
     Active Substance: AMLODIPINE BESYLATE
     Indication: HYPERTENSION
     Dosage: DAILY DOSE 5 MG
     Route: 048
  3. RIVAROXABAN [Suspect]
     Active Substance: RIVAROXABAN
     Dosage: UNK
     Route: 048
     Dates: start: 20201104
  4. FORTEO [Concomitant]
     Active Substance: TERIPARATIDE
     Indication: OSTEOPOROSIS
     Dosage: DAILY DOSE 600 UG
     Route: 058
     Dates: start: 20190806
  5. TRAMCET [Concomitant]
     Active Substance: ACETAMINOPHEN\TRAMADOL
     Indication: BACK PAIN
     Dosage: DAILY DOSE 2 DF
     Dates: start: 20200219
  6. GASTER [CROMOGLICATE SODIUM] [Concomitant]
     Indication: GASTRITIS
     Dosage: DAILY DOSE 20 MG
     Route: 048
     Dates: start: 20190806
  7. RIVAROXABAN [Suspect]
     Active Substance: RIVAROXABAN
     Indication: ATRIAL FIBRILLATION
     Dosage: 10 MG, QD
     Route: 048
     Dates: start: 20161010, end: 20200817

REACTIONS (10)
  - Iron deficiency anaemia [Recovered/Resolved]
  - Haematuria [Recovered/Resolved]
  - Ureterolithiasis [Recovered/Resolved]
  - Altered state of consciousness [Recovered/Resolved]
  - Altered state of consciousness [Recovered/Resolved]
  - Cerebral infarction [Recovered/Resolved]
  - Occult blood positive [Recovered/Resolved]
  - Hemiplegia [Recovered/Resolved]
  - Faeces discoloured [Recovered/Resolved]
  - Gastrointestinal haemorrhage [Recovered/Resolved]

NARRATIVE: CASE EVENT DATE: 201802
